FAERS Safety Report 25061204 (Version 1)
Quarter: 2025Q1

REPORT INFORMATION
  Report Type: Other
  Country: BG (occurrence: BG)
  Receive Date: 20250310
  Receipt Date: 20250310
  Transmission Date: 20250408
  Serious: Yes (Hospitalization)
  Sender: SQUARE PHARMACEUTICALS
  Company Number: BG-Square Pharmaceuticals PLC-000060

PATIENT
  Age: 64 Year
  Sex: Female

DRUGS (7)
  1. VALSARTAN [Suspect]
     Active Substance: VALSARTAN
     Indication: Hypertension
     Dosage: 160 MG HALF A TABLET IN THE MORNING
     Dates: start: 202304
  2. BISOPROLOL FUMARATE [Suspect]
     Active Substance: BISOPROLOL FUMARATE
     Indication: Hypertension
     Dosage: 5 MG HALF A TABLET IN THE MORNING
     Dates: start: 202304
  3. SPIRONOLACTONE [Suspect]
     Active Substance: SPIRONOLACTONE
     Indication: Hypertension
     Dosage: 25 MG ONCE IN THE MORNING
     Dates: start: 202304
  4. CHLORTHALIDONE [Suspect]
     Active Substance: CHLORTHALIDONE
     Indication: Hypertension
     Dosage: 25 MG ONCE IN THE MORNING
     Dates: start: 202304
  5. CLOPIDOGREL [Concomitant]
     Active Substance: CLOPIDOGREL BISULFATE
     Indication: Hypertension
     Dosage: 75 MG ONCE IN THE MORNING
     Dates: start: 202304
  6. BETAHISTINE [Concomitant]
     Active Substance: BETAHISTINE
     Indication: Hypertension
     Dosage: 24 MG TWICE DAILY - ONE IN THE MORNING AND ONE IN THE EVENING
     Dates: start: 202304
  7. ROSUVASTATIN [Concomitant]
     Active Substance: ROSUVASTATIN
     Indication: Hypertension
     Dosage: 10 MG ONCE IN THE EVENING
     Dates: start: 202304

REACTIONS (2)
  - Lichen planopilaris [Recovering/Resolving]
  - Condition aggravated [Recovering/Resolving]
